FAERS Safety Report 6714199-5 (Version None)
Quarter: 2010Q2

REPORT INFORMATION
  Report Type: 
  Country: None (occurrence: None)
  Receive Date: 20100506
  Receipt Date: 20100429
  Transmission Date: 20101027
  Serious: Yes (Hospitalization)
  Sender: FDA-Public Use
  Company Number: ES-WYE-G06061710

PATIENT
  Age: 25 Year
  Sex: Female

DRUGS (1)
  1. VANDRAL RETARD [Suspect]
     Indication: BIPOLAR DISORDER

REACTIONS (2)
  - BLOOD ALDOSTERONE INCREASED [None]
  - RENIN INCREASED [None]
